FAERS Safety Report 10637866 (Version 2)
Quarter: 2014Q4

REPORT INFORMATION
  Report Type: Report from Study
  Country: AT (occurrence: AT)
  Receive Date: 20141208
  Receipt Date: 20141208
  Transmission Date: 20150529
  Serious: Yes (Other)
  Sender: FDA-Public Use
  Company Number: AT-CELGENE-009-C5013-14070649

PATIENT
  Age: 74 Year
  Sex: Female
  Weight: 66 kg

DRUGS (8)
  1. CC-5013 [Suspect]
     Active Substance: LENALIDOMIDE
     Indication: MYELODYSPLASTIC SYNDROME
     Route: 048
     Dates: start: 20120723
  2. AUGMENTIN [Concomitant]
     Active Substance: AMOXICILLIN\CLAVULANATE POTASSIUM
     Indication: TONSILLITIS
     Dosage: 2 GRAM
     Route: 065
     Dates: start: 20140708, end: 20140712
  3. ZARZIO [Concomitant]
     Active Substance: FILGRASTIM
     Route: 065
     Dates: start: 20140718, end: 20140724
  4. DEPAKINE [Concomitant]
     Active Substance: VALPROATE SODIUM
     Indication: MYELODYSPLASTIC SYNDROME
     Route: 048
     Dates: start: 20131220, end: 20140520
  5. CC-5013 [Suspect]
     Active Substance: LENALIDOMIDE
     Dosage: 500 MILLIGRAM
     Route: 048
     Dates: start: 20121109, end: 20131203
  6. HALSET [Concomitant]
     Indication: TONSILLITIS
     Route: 065
     Dates: start: 20140708, end: 20140730
  7. XEFO [Concomitant]
     Active Substance: LORNOXICAM
     Indication: PAIN
     Route: 065
     Dates: start: 20140616
  8. EXJADE [Concomitant]
     Active Substance: DEFERASIROX
     Indication: MYELODYSPLASTIC SYNDROME
     Dosage: 300 MILLIGRAM
     Route: 048
     Dates: start: 20120714

REACTIONS (1)
  - Invasive ductal breast carcinoma [Not Recovered/Not Resolved]

NARRATIVE: CASE EVENT DATE: 20140526
